FAERS Safety Report 15787516 (Version 7)
Quarter: 2019Q4

REPORT INFORMATION
  Report Type: Spontaneous
  Country: US (occurrence: US)
  Receive Date: 20190103
  Receipt Date: 20191218
  Transmission Date: 20200122
  Serious: No
  Sender: FDA-Public Use
  Company Number: US-ACTELION-A-US2018-183730

PATIENT
  Age: 61 Year
  Sex: Female

DRUGS (6)
  1. HYDROXYCHLOROQUINE [Concomitant]
     Active Substance: HYDROXYCHLOROQUINE
     Dosage: 200 MG, BID
  2. WARFARIN [Concomitant]
     Active Substance: WARFARIN
     Dosage: 5-7.5 MG QD
  3. OMEPRAZOLE. [Concomitant]
     Active Substance: OMEPRAZOLE
     Dosage: 20 MG, QD
  4. OPSUMIT [Suspect]
     Active Substance: MACITENTAN
     Dosage: 10 MG, QD
     Route: 048
     Dates: start: 20181106
  5. SILDENAFIL. [Concomitant]
     Active Substance: SILDENAFIL
     Dosage: 2-3 TIMES DAILY
  6. OPSUMIT [Suspect]
     Active Substance: MACITENTAN
     Indication: PULMONARY ARTERIAL HYPERTENSION
     Dosage: 10 MG, QD
     Route: 048
     Dates: start: 2017

REACTIONS (16)
  - Necrosis [Unknown]
  - Cough [Unknown]
  - Nasopharyngitis [Unknown]
  - Malaise [Unknown]
  - Constipation [Unknown]
  - Hepatic enzyme increased [Unknown]
  - Discomfort [Unknown]
  - Dyspnoea [Unknown]
  - Nasal congestion [Unknown]
  - Myalgia [Unknown]
  - Muscle tightness [Unknown]
  - Multiple allergies [Unknown]
  - Product dose omission [Not Recovered/Not Resolved]
  - Bacterial infection [Unknown]
  - Flatulence [Unknown]
  - Infection [Unknown]

NARRATIVE: CASE EVENT DATE: 20191121
